FAERS Safety Report 9887500 (Version 1)
Quarter: 2014Q1

REPORT INFORMATION
  Report Type: Spontaneous
  Country: US (occurrence: None)
  Receive Date: 20140205
  Receipt Date: 20140205
  Transmission Date: 20141002
  Serious: Yes (Other)
  Sender: FDA-Public Use
  Company Number: DE-DEXPHARM-20140012

PATIENT
  Age: 16 Year
  Sex: Female

DRUGS (3)
  1. FLUOXETINE [Suspect]
     Indication: DEPRESSION
     Route: 048
     Dates: start: 20130827
  2. DICLOFENAC [Suspect]
     Dates: start: 201312
  3. L-THYROXIN VALETTE [Concomitant]

REACTIONS (8)
  - Muscle spasms [None]
  - Muscle twitching [None]
  - Strabismus [None]
  - Tremor [None]
  - Substance use [None]
  - Cerebral haemorrhage [None]
  - Serotonin syndrome [None]
  - Somatoform disorder [None]
